FAERS Safety Report 22314985 (Version 1)
Quarter: 2023Q2

REPORT INFORMATION
  Report Type: Spontaneous
  Country: CH (occurrence: CH)
  Receive Date: 20230512
  Receipt Date: 20230512
  Transmission Date: 20230721
  Serious: Yes (Other)
  Sender: FDA-Public Use
  Company Number: None

PATIENT
  Age: 32 Year
  Sex: Female
  Weight: 83 kg

DRUGS (8)
  1. DUPIXENT [Suspect]
     Active Substance: DUPILUMAB
     Indication: NSAID exacerbated respiratory disease
     Dosage: 300 MG, QOW
     Route: 058
     Dates: start: 202208, end: 202304
  2. MAGNESIUM ASPARTATE DIHYDRATE [Concomitant]
     Active Substance: MAGNESIUM ASPARTATE DIHYDRATE
     Dosage: 12 MMOL, QD
     Route: 048
  3. CORVATON FORTE [Concomitant]
     Dosage: 4 MG, TID
     Route: 048
  4. DILTIAZEM [Concomitant]
     Active Substance: DILTIAZEM
     Dosage: 180 MG, BID
     Route: 048
  5. ATORVASTATIN [Concomitant]
     Active Substance: ATORVASTATIN
     Dosage: 40 MG, QD
     Route: 048
  6. ISOKET RETARD [Concomitant]
     Dosage: 120 MG, PRN
     Route: 048
  7. ATROVENT [Concomitant]
     Active Substance: IPRATROPIUM BROMIDE
     Dosage: UNK, PRN
  8. BUDESONIDE [Concomitant]
     Active Substance: BUDESONIDE
     Dosage: UNK

REACTIONS (2)
  - Weight increased [Not Recovered/Not Resolved]
  - Product use in unapproved indication [Unknown]

NARRATIVE: CASE EVENT DATE: 20220801
